FAERS Safety Report 9231880 (Version 1)
Quarter: 2013Q2

REPORT INFORMATION
  Report Type: Spontaneous
  Country: US (occurrence: US)
  Receive Date: 20130415
  Receipt Date: 20130415
  Transmission Date: 20140414
  Serious: Yes (Other)
  Sender: FDA-Public Use
  Company Number: US-ELI_LILLY_AND_COMPANY-US201304002732

PATIENT
  Sex: 0

DRUGS (1)
  1. HUMATROPE [Suspect]

REACTIONS (1)
  - Brain neoplasm malignant [Unknown]
